FAERS Safety Report 16505989 (Version 2)
Quarter: 2019Q3

REPORT INFORMATION
  Report Type: Spontaneous
  Country: US (occurrence: US)
  Receive Date: 20190701
  Receipt Date: 20190807
  Transmission Date: 20191004
  Serious: Yes (Other)
  Sender: FDA-Public Use
  Company Number: US-BAYER-2019-119761

PATIENT
  Sex: Male

DRUGS (1)
  1. KOGENATE FS [Suspect]
     Active Substance: ANTIHEMOPHILIC FACTOR, HUMAN RECOMBINANT
     Indication: FACTOR VIII DEFICIENCY
     Dosage: 2020-2525 TIW
     Route: 042
     Dates: start: 20170413

REACTIONS (3)
  - Haemarthrosis [Not Recovered/Not Resolved]
  - Ingrowing nail [None]
  - Post procedural haemorrhage [None]
